FAERS Safety Report 8082238-8 (Version None)
Quarter: 2012Q1

REPORT INFORMATION
  Report Type: 
  Country: None (occurrence: None)
  Receive Date: 20120127
  Receipt Date: 20110228
  Transmission Date: 20120608
  Serious: No
  Sender: FDA-Public Use
  Company Number: US-ABBOTT-11P-163-0708123-00

PATIENT
  Age: 52 Year
  Sex: Female

DRUGS (9)
  1. CLONAZEPAM [Concomitant]
     Indication: INSOMNIA
     Dosage: AT BEDTIME
  2. BENTYL [Concomitant]
     Indication: ABDOMINAL PAIN UPPER
  3. BUTALBITAL COMPOUND [Concomitant]
     Indication: MIGRAINE
  4. FLEXERIL [Concomitant]
     Indication: MUSCLE DISORDER
  5. PREDNISONE TAB [Concomitant]
     Indication: PRODUCT USED FOR UNKNOWN INDICATION
     Dosage: 10-20 MG WITH FLARE UP
  6. PERCOCET [Concomitant]
     Indication: PAIN
  7. PERCOCET [Concomitant]
     Indication: FIBROMYALGIA
  8. HUMIRA [Suspect]
     Indication: CROHN'S DISEASE
     Dates: start: 20110103
  9. GABAPENTIN [Concomitant]
     Indication: PRODUCT USED FOR UNKNOWN INDICATION

REACTIONS (2)
  - INJECTION SITE PAIN [None]
  - INJECTION SITE HAEMATOMA [None]
